FAERS Safety Report 20118872 (Version 1)
Quarter: 2021Q4

REPORT INFORMATION
  Report Type: Report from Study
  Country: US (occurrence: US)
  Receive Date: 20211126
  Receipt Date: 20211126
  Transmission Date: 20220303
  Serious: No
  Sender: FDA-Public Use
  Company Number: US-ABBVIE-21K-163-4168736-00

PATIENT
  Sex: Female
  Weight: 82.074 kg

DRUGS (6)
  1. ORIAHNN [Suspect]
     Active Substance: ELAGOLIX SODIUM\ESTRADIOL\NORETHINDRONE
     Indication: Uterine disorder
     Dosage: 1 PILL IN THE MORNING AND 1 PILL AT NIGHT, 12 HOURS APART
     Route: 048
     Dates: start: 20210823
  2. ORIAHNN [Suspect]
     Active Substance: ELAGOLIX SODIUM\ESTRADIOL\NORETHINDRONE
     Indication: Vaginal haemorrhage
  3. ORIAHNN [Suspect]
     Active Substance: ELAGOLIX SODIUM\ESTRADIOL\NORETHINDRONE
     Indication: Uterine disorder
     Dosage: 1 PILL IN THE MORNING AND 1 PILL AT NIGHT, 12 HOURS APART
     Route: 048
     Dates: start: 20210823
  4. ORIAHNN [Suspect]
     Active Substance: ELAGOLIX SODIUM\ESTRADIOL\NORETHINDRONE
     Indication: Vaginal haemorrhage
  5. OZEMPIC [Concomitant]
     Active Substance: SEMAGLUTIDE
     Indication: Metabolic syndrome
  6. FERRIC POLYSACCHARIDE COMPLEX [Concomitant]
     Active Substance: FERRIC POLYSACCHARIDE COMPLEX
     Indication: Product used for unknown indication
     Dosage: 150 MILLIGRAMS

REACTIONS (6)
  - Pelvic pain [Not Recovered/Not Resolved]
  - Back pain [Not Recovered/Not Resolved]
  - Depression [Recovering/Resolving]
  - Nausea [Unknown]
  - Coagulopathy [Unknown]
  - Abdominal pain [Unknown]

NARRATIVE: CASE EVENT DATE: 20210101
